FAERS Safety Report 8247023-2 (Version None)
Quarter: 2012Q1

REPORT INFORMATION
  Report Type: 
  Country: None (occurrence: None)
  Receive Date: 20120330
  Receipt Date: 20120330
  Transmission Date: 20120608
  Serious: No
  Sender: FDA-Public Use
  Company Number: None

PATIENT
  Age: 56 Year
  Sex: Female
  Weight: 83.914 kg

DRUGS (2)
  1. VENLAFAXINE HCL EXTENDED-RELEASE [Suspect]
     Indication: MAJOR DEPRESSION
     Route: 048
     Dates: start: 20110101, end: 20120329
  2. VENLAFAXINE HCL EXTENDED-RELEASE [Concomitant]

REACTIONS (4)
  - UNEVALUABLE EVENT [None]
  - TREATMENT NONCOMPLIANCE [None]
  - MEDICATION RESIDUE [None]
  - PRODUCT SUBSTITUTION ISSUE [None]
